FAERS Safety Report 9253011 (Version 1)
Quarter: 2013Q2

REPORT INFORMATION
  Report Type: Spontaneous
  Country: US (occurrence: US)
  Receive Date: 20130424
  Receipt Date: 20130424
  Transmission Date: 20140414
  Serious: Yes (Other)
  Sender: FDA-Public Use
  Company Number: US-ELI_LILLY_AND_COMPANY-US201304005691

PATIENT
  Age: 53 Year
  Sex: Female

DRUGS (1)
  1. FORTEO [Suspect]
     Indication: OSTEOPOROSIS

REACTIONS (7)
  - Fracture [Unknown]
  - Lower limb fracture [Unknown]
  - Spinal fracture [Unknown]
  - Cervical vertebral fracture [Unknown]
  - Body height decreased [Unknown]
  - Pain [Unknown]
  - Rib fracture [Unknown]
